FAERS Safety Report 15241345 (Version 1)
Quarter: 2018Q3

REPORT INFORMATION
  Report Type: Spontaneous
  Country: US (occurrence: US)
  Receive Date: 20180711
  Receipt Date: 20180711
  Transmission Date: 20181010
  Serious: Yes (Life-Threatening, Disabling)
  Sender: FDA-Public Use
  Company Number: None

PATIENT
  Age: 42 Year
  Sex: Female

DRUGS (4)
  1. ZOLOFT [Concomitant]
     Active Substance: SERTRALINE HYDROCHLORIDE
  2. CANNABIS [Concomitant]
     Active Substance: CANNABIS SATIVA SUBSP. INDICA TOP
  3. GADOLINIUM [Suspect]
     Active Substance: GADOLINIUM
  4. LITHIUM. [Concomitant]
     Active Substance: LITHIUM

REACTIONS (11)
  - Amnesia [None]
  - Mastication disorder [None]
  - Miliaria [None]
  - Tinnitus [None]
  - Dysarthria [None]
  - Bone lesion [None]
  - Toxicity to various agents [None]
  - Bone pain [None]
  - Aphasia [None]
  - Pain [None]
  - Muscle atrophy [None]

NARRATIVE: CASE EVENT DATE: 20120814
